FAERS Safety Report 11322945 (Version 4)
Quarter: 2015Q4

REPORT INFORMATION
  Report Type: Spontaneous
  Country: FR (occurrence: FR)
  Receive Date: 20150730
  Receipt Date: 20151006
  Transmission Date: 20160304
  Serious: Yes (Other)
  Sender: FDA-Public Use
  Company Number: FR-BIOGENIDEC-2015BI105237

PATIENT
  Age: 34 Year
  Sex: Female
  Weight: 47 kg

DRUGS (2)
  1. TECFIDERA [Suspect]
     Active Substance: DIMETHYL FUMARATE
     Indication: RELAPSING-REMITTING MULTIPLE SCLEROSIS
     Route: 048
     Dates: start: 201412, end: 20150427
  2. DUPHASTON [Concomitant]
     Active Substance: DYDROGESTERONE

REACTIONS (2)
  - Abortion induced [Recovered/Resolved]
  - Maternal exposure during pregnancy [Recovered/Resolved]

NARRATIVE: CASE EVENT DATE: 20150730
